FAERS Safety Report 19564907 (Version 1)
Quarter: 2021Q3

REPORT INFORMATION
  Report Type: Spontaneous
  Country: US (occurrence: US)
  Receive Date: 20210715
  Receipt Date: 20210715
  Transmission Date: 20211014
  Serious: No
  Sender: FDA-Public Use
  Company Number: US-BAYER-2021-172959

PATIENT

DRUGS (1)
  1. CLARITIN?D NOS [Suspect]
     Active Substance: LORATADINE\PSEUDOEPHEDRINE SULFATE
     Indication: SINUS CONGESTION
     Dosage: UNK
     Dates: start: 20210709

REACTIONS (1)
  - Drug effective for unapproved indication [Unknown]

NARRATIVE: CASE EVENT DATE: 20210709
